FAERS Safety Report 12328246 (Version 3)
Quarter: 2016Q3

REPORT INFORMATION
  Report Type: Report from Study
  Country: US (occurrence: US)
  Receive Date: 20160503
  Receipt Date: 20160714
  Transmission Date: 20161109
  Serious: Yes (Other)
  Sender: FDA-Public Use
  Company Number: US-AMGEN-USASL2015117065

PATIENT
  Age: 89 Year
  Sex: Female

DRUGS (3)
  1. PROLIA [Suspect]
     Active Substance: DENOSUMAB
     Dosage: UNK
     Route: 065
  2. PROLIA [Suspect]
     Active Substance: DENOSUMAB
     Indication: OSTEOPOROSIS POSTMENOPAUSAL
     Dosage: UNK
     Route: 065
  3. PROLIA [Suspect]
     Active Substance: DENOSUMAB
     Indication: SPINAL COLUMN STENOSIS
     Dosage: UNK
     Route: 065

REACTIONS (13)
  - Pain in jaw [Not Recovered/Not Resolved]
  - Exposed bone in jaw [Not Recovered/Not Resolved]
  - Bone density abnormal [Unknown]
  - Hypoacusis [Unknown]
  - Back pain [Unknown]
  - Endodontic procedure [Unknown]
  - Abasia [Unknown]
  - Impaired healing [Not Recovered/Not Resolved]
  - Bone swelling [Not Recovered/Not Resolved]
  - Cystitis [Unknown]
  - Tooth infection [Recovered/Resolved]
  - Pain in extremity [Unknown]
  - Tooth extraction [Not Recovered/Not Resolved]

NARRATIVE: CASE EVENT DATE: 201504
